FAERS Safety Report 15594892 (Version 1)
Quarter: 2018Q4

REPORT INFORMATION
  Report Type: Spontaneous
  Country: US (occurrence: US)
  Receive Date: 20181107
  Receipt Date: 20181107
  Transmission Date: 20190205
  Serious: No
  Sender: FDA-Public Use
  Company Number: None

PATIENT
  Age: 56 Year
  Sex: Female

DRUGS (4)
  1. SIMVASTATIN 20MG [Suspect]
     Active Substance: SIMVASTATIN
  2. LIPITOR [Suspect]
     Active Substance: ATORVASTATIN CALCIUM
     Indication: HYPERCHOLESTEROLAEMIA
  3. PRAVASTATIN. [Suspect]
     Active Substance: PRAVASTATIN
  4. ROSUVASTATIN 20MG [Concomitant]
     Active Substance: ROSUVASTATIN

REACTIONS (3)
  - Urticaria [None]
  - Pruritus [None]
  - Rash [None]

NARRATIVE: CASE EVENT DATE: 20130205
